FAERS Safety Report 7500650-X (Version None)
Quarter: 2011Q2

REPORT INFORMATION
  Report Type: 
  Country: None (occurrence: None)
  Receive Date: 20110517
  Receipt Date: 20110503
  Transmission Date: 20111010
  Serious: Yes (Hospitalization, Congenital Anomaly)
  Sender: FDA-Public Use
  Company Number: DSM-2011-00337

PATIENT
  Sex: Female
  Weight: 1.65 kg

DRUGS (2)
  1. RIFINAH (ISONIAZID, RIFAMPICIN) (ISONIAZID, RIFAMPICIN) [Concomitant]
  2. AXELER (OLMESARTAN MEDOXOMIL, AMLODIPINE BESILATE) (OLMESARTAN MEDOXOM [Suspect]
     Indication: DRUG EXPOSURE DURING PREGNANCY
     Dosage: TRANSPLACENTAL
     Route: 064
     Dates: start: 20100601

REACTIONS (22)
  - HYPOTENSION [None]
  - HYPOPHOSPHATAEMIA [None]
  - FOETAL GROWTH RESTRICTION [None]
  - STAPHYLOCOCCAL INFECTION [None]
  - ANURIA [None]
  - PERITONEAL DIALYSIS [None]
  - HYPOMAGNESAEMIA [None]
  - DEVICE MALFUNCTION [None]
  - OLIGOHYDRAMNIOS [None]
  - RENAL FAILURE [None]
  - NEONATAL RESPIRATORY DISTRESS SYNDROME [None]
  - HAEMOGLOBIN DECREASED [None]
  - ACTIVATED PARTIAL THROMBOPLASTIN TIME PROLONGED [None]
  - MATERNAL DRUGS AFFECTING FOETUS [None]
  - PREMATURE BABY [None]
  - SHOCK [None]
  - WHITE BLOOD CELL COUNT DECREASED [None]
  - METABOLIC ACIDOSIS [None]
  - FOETAL HEART RATE ABNORMAL [None]
  - CAESAREAN SECTION [None]
  - ENTEROCOLITIS [None]
  - ENTEROBACTER INFECTION [None]
